FAERS Safety Report 6192930-8 (Version None)
Quarter: 2009Q2

REPORT INFORMATION
  Report Type: 
  Country: None (occurrence: None)
  Receive Date: 20090518
  Receipt Date: 20090513
  Transmission Date: 20091009
  Serious: Yes (Death)
  Sender: FDA-Public Use
  Company Number: BE-ASTRAZENECA-2009AC01380

PATIENT

DRUGS (1)
  1. SEROQUEL [Suspect]
     Route: 065

REACTIONS (1)
  - COMPLETED SUICIDE [None]
